FAERS Safety Report 9825712 (Version 2)
Quarter: 2014Q1

REPORT INFORMATION
  Report Type: Spontaneous
  Country: IN (occurrence: IN)
  Receive Date: 20140117
  Receipt Date: 20140129
  Transmission Date: 20141002
  Serious: Yes (Hospitalization)
  Sender: FDA-Public Use
  Company Number: IN-SA-2014SA004987

PATIENT
  Age: 43 Year
  Sex: Male

DRUGS (7)
  1. PENTAZOCINE HYDROCHLORIDE [Suspect]
     Indication: MIGRAINE
     Route: 065
  2. PENTAZOCINE HYDROCHLORIDE [Suspect]
     Indication: DRUG ABUSE
     Route: 065
  3. PENTAZOCINE HYDROCHLORIDE [Suspect]
     Indication: MIGRAINE
     Dosage: INCREASED DOSES
     Route: 042
  4. PENTAZOCINE HYDROCHLORIDE [Suspect]
     Indication: DRUG ABUSE
     Dosage: INCREASED DOSES
     Route: 042
  5. PENTAZOCINE HYDROCHLORIDE [Suspect]
     Indication: MIGRAINE
     Route: 030
  6. PENTAZOCINE HYDROCHLORIDE [Suspect]
     Indication: DRUG ABUSE
     Route: 030
  7. PROMETHAZINE [Concomitant]
     Indication: MIGRAINE

REACTIONS (13)
  - Needle track marks [Recovering/Resolving]
  - Drug abuser [Unknown]
  - Drug dependence [Unknown]
  - Purulent discharge [Recovering/Resolving]
  - Pain [Recovering/Resolving]
  - Tenderness [Recovering/Resolving]
  - Injection site thrombosis [Unknown]
  - Cellulitis [Recovering/Resolving]
  - Pyomyositis [Recovering/Resolving]
  - Abscess [Recovering/Resolving]
  - Skin ulcer [Recovering/Resolving]
  - Convulsion [Unknown]
  - Drug withdrawal syndrome [Unknown]
